FAERS Safety Report 15122227 (Version 2)
Quarter: 2018Q3

REPORT INFORMATION
  Report Type: Report from Study
  Country: DE (occurrence: DE)
  Receive Date: 20180709
  Receipt Date: 20180712
  Transmission Date: 20181010
  Serious: Yes (Hospitalization)
  Sender: FDA-Public Use
  Company Number: DE-BEH-2018092480

PATIENT
  Age: 72 Year
  Sex: Male
  Weight: 104 kg

DRUGS (6)
  1. EPROSARTAN [Concomitant]
     Active Substance: EPROSARTAN
  2. MOXONIDIN [Concomitant]
     Active Substance: MOXONIDINE
  3. CARMEN                             /01366402/ [Concomitant]
     Active Substance: LERCANIDIPINE
  4. PRIVIGEN [Suspect]
     Active Substance: HUMAN IMMUNOGLOBULIN G
     Dosage: 10 G, TOT
     Route: 042
     Dates: start: 20180705
  5. PRIVIGEN [Suspect]
     Active Substance: HUMAN IMMUNOGLOBULIN G
     Indication: SECONDARY IMMUNODEFICIENCY
     Dosage: 10 G, TOT
     Route: 042
     Dates: start: 20180607
  6. PRIVIGEN [Suspect]
     Active Substance: HUMAN IMMUNOGLOBULIN G
     Indication: MANTLE CELL LYMPHOMA
     Dosage: 10 G, TOT
     Route: 042
     Dates: start: 20180503, end: 20180503

REACTIONS (2)
  - Chest discomfort [Recovered/Resolved]
  - Hypertensive emergency [Recovered/Resolved]

NARRATIVE: CASE EVENT DATE: 20180503
